FAERS Safety Report 9023906 (Version 1)
Quarter: 2013Q1

REPORT INFORMATION
  Report Type: Spontaneous
  Country: US (occurrence: US)
  Receive Date: 20130121
  Receipt Date: 20130121
  Transmission Date: 20140127
  Serious: No
  Sender: FDA-Public Use
  Company Number: US-PFIZER INC-2013022323

PATIENT
  Sex: Female
  Weight: 77.1 kg

DRUGS (1)
  1. NARDIL [Suspect]
     Indication: PROPHYLAXIS
     Dosage: 15 MG, DAILY
     Route: 048

REACTIONS (2)
  - Dental caries [Unknown]
  - Pain [Unknown]
